FAERS Safety Report 5570907-0 (Version None)
Quarter: 2007Q4

REPORT INFORMATION
  Report Type: 
  Country: None (occurrence: None)
  Receive Date: 20071221
  Receipt Date: 20071211
  Transmission Date: 20080405
  Serious: Yes (Other)
  Sender: FDA-Public Use
  Company Number: US-AVENTIS-200718605US

PATIENT
  Age: 57 Year
  Sex: Female

DRUGS (6)
  1. RILUTEK [Suspect]
     Dosage: DOSE: UNK
  2. BACLOFEN [Concomitant]
     Dosage: DOSE: UNK
  3. NEURONTIN [Concomitant]
     Dosage: DOSE: UNK
  4. TRAZODONE HCL [Concomitant]
     Dosage: DOSE: UNK
  5. CYMBALTA [Concomitant]
     Dosage: DOSE: UNK
  6. PHENERGAN HCL [Concomitant]
     Dosage: DOSE: UNK

REACTIONS (1)
  - ILEUS [None]
